FAERS Safety Report 6404511-9 (Version None)
Quarter: 2009Q4

REPORT INFORMATION
  Report Type: 
  Country: None (occurrence: None)
  Receive Date: 20091016
  Receipt Date: 20091008
  Transmission Date: 20100525
  Serious: Yes (Other)
  Sender: FDA-Public Use
  Company Number: JP-BRISTOL-MYERS SQUIBB COMPANY-14784581

PATIENT
  Age: 65 Year
  Sex: Female

DRUGS (9)
  1. ABILIFY [Suspect]
     Indication: SCHIZOPHRENIA
     Dosage: 21JUN-4JUL:6MG QD 5JUL-18JUL08:12MG OD 19JUL-ONGOING: 12MG BID
     Route: 048
     Dates: start: 20080621
  2. VEGETAMIN A [Concomitant]
     Dosage: TABS
  3. NITRAZEPAM [Concomitant]
     Dosage: TABS
  4. MAGNESIUM OXIDE [Concomitant]
     Dosage: POWDER
  5. SODIUM PICOSULFATE [Concomitant]
     Dosage: LIQUID
  6. VOGLIBOSE [Concomitant]
     Dosage: TABS
     Dates: start: 20080201
  7. UNIPHYL [Concomitant]
     Dosage: UNIPHYL LA TABS
     Dates: start: 20080301
  8. RISPERIDONE [Concomitant]
     Dosage: TABS
     Dates: start: 20090103
  9. TRIHEXYPHENIDYL HCL [Concomitant]
     Dates: start: 20090523

REACTIONS (1)
  - DEEP VEIN THROMBOSIS [None]
